FAERS Safety Report 8085755-X (Version None)
Quarter: 2012Q1

REPORT INFORMATION
  Report Type: 
  Country: None (occurrence: None)
  Receive Date: 20120128
  Receipt Date: 20110404
  Transmission Date: 20120608
  Serious: No
  Sender: FDA-Public Use
  Company Number: US-ABBOTT-11P-163-0716693-00

PATIENT
  Sex: Female
  Weight: 65.376 kg

DRUGS (5)
  1. HUMIRA [Suspect]
     Indication: RHEUMATOID ARTHRITIS
     Dates: start: 20080101
  2. DIVALPROEX SODIUM [Concomitant]
     Indication: ANXIETY
  3. METHOTREXATE [Concomitant]
     Indication: RHEUMATOID ARTHRITIS
  4. BUTROPION [Concomitant]
     Indication: ANXIETY
  5. VITAMIN TAB [Concomitant]
     Indication: VITAMIN SUPPLEMENTATION

REACTIONS (1)
  - INCORRECT STORAGE OF DRUG [None]
